FAERS Safety Report 4883845-3 (Version None)
Quarter: 2006Q1

REPORT INFORMATION
  Report Type: 
  Country: None (occurrence: None)
  Receive Date: 20060113
  Receipt Date: 20060111
  Transmission Date: 20060701
  Serious: Yes (Hospitalization)
  Sender: FDA-Public Use
  Company Number: TAP2006Q00002

PATIENT
  Age: 23 Year
  Sex: Female

DRUGS (5)
  1. LUPRON DEPOT-3 [Suspect]
     Indication: ENDOMETRIOSIS
     Dosage: 11.25 MG, ONCE, INTRAMUSCULAR
     Route: 030
     Dates: start: 20050923, end: 20050923
  2. REMICADE [Concomitant]
  3. PLAQUENIL (HYDROXYCHLOROQUINE PHOPSPHATE) [Concomitant]
  4. METHOTREXATE [Concomitant]
  5. FOLIC ACID [Concomitant]

REACTIONS (7)
  - ASTHENIA [None]
  - BLOOD HOMOCYSTEINE INCREASED [None]
  - FACIAL PALSY [None]
  - HEMIPLEGIA [None]
  - HYPOAESTHESIA [None]
  - PARAESTHESIA [None]
  - PITUITARY TUMOUR BENIGN [None]
